FAERS Safety Report 10578655 (Version 1)
Quarter: 2014Q4

REPORT INFORMATION
  Report Type: Spontaneous
  Country: US (occurrence: None)
  Receive Date: 20141111
  Receipt Date: 20141111
  Transmission Date: 20150529
  Serious: Yes (Hospitalization)
  Sender: FDA-Public Use
  Company Number: None

PATIENT
  Age: 60 Year
  Sex: Female
  Weight: 65.32 kg

DRUGS (1)
  1. BRISDELLE [Suspect]
     Active Substance: PAROXETINE MESYLATE
     Indication: HOT FLUSH
     Dosage: ONE CAPSULE
     Route: 048
     Dates: start: 20140801, end: 20140929

REACTIONS (3)
  - Drug ineffective [None]
  - Hot flush [None]
  - Seizure [None]

NARRATIVE: CASE EVENT DATE: 20141001
